FAERS Safety Report 24746408 (Version 2)
Quarter: 2024Q4

REPORT INFORMATION
  Report Type: Spontaneous
  Country: TR (occurrence: TR)
  Receive Date: 20241218
  Receipt Date: 20241230
  Transmission Date: 20250115
  Serious: Yes (Life-Threatening, Hospitalization)
  Sender: TEVA
  Company Number: TR-TEVA-VS-3276034

PATIENT
  Age: 44 Year
  Sex: Female

DRUGS (9)
  1. CARBOPLATIN [Suspect]
     Active Substance: CARBOPLATIN
     Indication: Neuroendocrine carcinoma
     Route: 065
  2. METOCLOPRAMIDE [Suspect]
     Active Substance: METOCLOPRAMIDE
     Indication: Diarrhoea
     Route: 065
  3. LOPERAMIDE [Suspect]
     Active Substance: LOPERAMIDE
     Indication: Diarrhoea
     Route: 065
  4. ETOPOSIDE [Suspect]
     Active Substance: ETOPOSIDE
     Indication: Neuroendocrine carcinoma
     Route: 065
  5. SODIUM BICARBONATE [Concomitant]
     Active Substance: SODIUM BICARBONATE
     Indication: Acute kidney injury
     Route: 065
  6. OCTREOTIDE [Suspect]
     Active Substance: OCTREOTIDE
     Indication: Neuroendocrine carcinoma
     Route: 065
  7. LANREOTIDE [Suspect]
     Active Substance: LANREOTIDE
     Indication: Neuroendocrine carcinoma
     Route: 065
  8. POTASSIUM [Concomitant]
     Active Substance: POTASSIUM
     Indication: Hypokalaemia
     Route: 042
  9. LEVOTHYROXINE [Concomitant]
     Active Substance: LEVOTHYROXINE
     Indication: Goitre
     Route: 065

REACTIONS (1)
  - Drug ineffective [Unknown]
